FAERS Safety Report 8564515-7 (Version None)
Quarter: 2012Q3

REPORT INFORMATION
  Report Type: 
  Country: None (occurrence: None)
  Receive Date: 20120803
  Receipt Date: 20120725
  Transmission Date: 20120928
  Serious: Yes (Hospitalization)
  Sender: FDA-Public Use
  Company Number: DE-BRISTOL-MYERS SQUIBB COMPANY-16577231

PATIENT
  Age: 52 Year
  Sex: Female
  Weight: 45 kg

DRUGS (4)
  1. DOCETAXEL [Suspect]
     Indication: HEAD AND NECK CANCER METASTATIC
     Dosage: RECENT DOSE: APR12
     Dates: start: 20120314
  2. CISPLATIN [Suspect]
     Indication: HEAD AND NECK CANCER METASTATIC
     Dosage: RECENT DOSE: APR12
     Dates: start: 20120314
  3. FLUOROURACIL [Suspect]
     Indication: HEAD AND NECK CANCER METASTATIC
     Dosage: RECENT DOSE: APR12
     Dates: start: 20120314
  4. CETUXIMAB [Suspect]
     Indication: HEAD AND NECK CANCER METASTATIC
     Dosage: RECENT DOSE:APR12
     Dates: start: 20120314

REACTIONS (3)
  - GENERAL PHYSICAL HEALTH DETERIORATION [None]
  - LARGE INTESTINE PERFORATION [None]
  - FATIGUE [None]
